FAERS Safety Report 23377055 (Version 2)
Quarter: 2024Q1

REPORT INFORMATION
  Report Type: Spontaneous
  Country: JP (occurrence: JP)
  Receive Date: 20240108
  Receipt Date: 20240123
  Transmission Date: 20240409
  Serious: Yes (Other)
  Sender: FDA-Public Use
  Company Number: JP-TEVA-VS-3141725

PATIENT
  Age: 58 Year

DRUGS (1)
  1. LANSOPRAZOLE [Suspect]
     Active Substance: LANSOPRAZOLE
     Indication: Gastrooesophageal reflux disease
     Dosage: DOSAGE IS UNKNOWN, LANSOPRAZOLE OD TABLET, ?LANSOPRAZOLE TEVA TAKEDA
     Route: 048
     Dates: start: 20231226

REACTIONS (1)
  - Internal haemorrhage [Unknown]
